FAERS Safety Report 10425178 (Version 1)
Quarter: 2014Q3

REPORT INFORMATION
  Report Type: Spontaneous
  Country: IT (occurrence: IT)
  Receive Date: 20140902
  Receipt Date: 20140902
  Transmission Date: 20150326
  Serious: Yes (Other)
  Sender: FDA-Public Use
  Company Number: IT-TEVA-504353ISR

PATIENT
  Age: 58 Year
  Sex: Female
  Weight: 85 kg

DRUGS (1)
  1. PACLITAXEL TEVA [Suspect]
     Active Substance: PACLITAXEL
     Indication: BREAST CANCER
     Dosage: 252 MILLIGRAM DAILY;
     Route: 042
     Dates: start: 20140714

REACTIONS (3)
  - Loss of consciousness [Recovered/Resolved]
  - Drooling [Recovered/Resolved]
  - Pallor [Recovered/Resolved]

NARRATIVE: CASE EVENT DATE: 20140804
